FAERS Safety Report 14239351 (Version 1)
Quarter: 2017Q4

REPORT INFORMATION
  Report Type: Spontaneous
  Country: US (occurrence: US)
  Receive Date: 20171127
  Receipt Date: 20171127
  Transmission Date: 20180321
  Serious: Yes (Other)
  Sender: FDA-Public Use
  Company Number: None

PATIENT
  Age: 36 Year
  Sex: Female
  Weight: 51.3 kg

DRUGS (2)
  1. TRIMETHOPRIM AND SULFAMETHOSOXAZOLE DS [Suspect]
     Active Substance: SULFAMETHOXAZOLE\TRIMETHOPRIM
     Indication: PNEUMONIA
     Dosage: ?          OTHER ROUTE:G-TUBE?
     Dates: start: 20170825, end: 20170831
  2. TRIMETHOPRIM AND SULFAMETHOSOXAZOLE DS [Suspect]
     Active Substance: SULFAMETHOXAZOLE\TRIMETHOPRIM
     Indication: URINARY TRACT INFECTION
     Dosage: ?          OTHER ROUTE:G-TUBE?
     Dates: start: 20170825, end: 20170831

REACTIONS (3)
  - Aplastic anaemia [None]
  - Oedema [None]
  - Pancytopenia [None]

NARRATIVE: CASE EVENT DATE: 20170912
